FAERS Safety Report 6829490-1 (Version None)
Quarter: 2010Q3

REPORT INFORMATION
  Report Type: 
  Country: None (occurrence: None)
  Receive Date: 20100709
  Receipt Date: 20070320
  Transmission Date: 20110219
  Serious: No
  Sender: FDA-Public Use
  Company Number: US-PFIZER INC-2007006682

PATIENT
  Sex: Male
  Weight: 68.04 kg

DRUGS (1)
  1. CHANTIX [Suspect]
     Indication: SMOKING CESSATION THERAPY
     Route: 048
     Dates: start: 20061201, end: 20070101

REACTIONS (4)
  - ASTHENOPIA [None]
  - BLINDNESS [None]
  - MYDRIASIS [None]
  - VISUAL IMPAIRMENT [None]
